FAERS Safety Report 15931906 (Version 2)
Quarter: 2019Q2

REPORT INFORMATION
  Report Type: Spontaneous
  Country: US (occurrence: US)
  Receive Date: 20190207
  Receipt Date: 20190620
  Transmission Date: 20190711
  Serious: Yes (Hospitalization, Other)
  Sender: FDA-Public Use
  Company Number: US-INDIVIOR INC.-INDV-117513-2019

PATIENT
  Sex: Male
  Weight: 113.38 kg

DRUGS (9)
  1. HYDRALAZINE [Concomitant]
     Active Substance: HYDRALAZINE HYDROCHLORIDE
     Indication: HYPERTENSION
     Dosage: 50MG BID
     Route: 065
  2. ANDROGEL [Concomitant]
     Active Substance: TESTOSTERONE
     Indication: PRODUCT USED FOR UNKNOWN INDICATION
     Dosage: 1.62% 2 PUMPS DAILY
     Route: 065
  3. SUBOXONE [Suspect]
     Active Substance: BUPRENORPHINE HYDROCHLORIDE\NALOXONE HYDROCHLORIDE
     Dosage: UNK, DECREASED TO UNKNOWN DOSE
     Route: 060
     Dates: end: 2018
  4. OXYCODONE [Concomitant]
     Active Substance: OXYCODONE
     Indication: BACK PAIN
     Dosage: UNK
     Route: 065
  5. SUBOXONE [Suspect]
     Active Substance: BUPRENORPHINE HYDROCHLORIDE\NALOXONE HYDROCHLORIDE
     Indication: PAIN
     Dosage: 8 MG FOUR FILMS A DAY
     Route: 060
     Dates: start: 201706
  6. SUBLOCADE [Suspect]
     Active Substance: BUPRENORPHINE
     Indication: PAIN
     Dosage: 300 MILLIGRAM, QMO
     Route: 058
     Dates: start: 201805, end: 20181217
  7. LISINOPRIL. [Concomitant]
     Active Substance: LISINOPRIL
     Indication: HYPERTENSION
     Dosage: 10MG DAILY
     Route: 065
  8. NAPROSYN [Concomitant]
     Active Substance: NAPROXEN
     Indication: INFLAMMATION
     Dosage: 500MG BID
     Route: 065
  9. OXYCONTIN [Concomitant]
     Active Substance: OXYCODONE HYDROCHLORIDE
     Indication: PRODUCT USED FOR UNKNOWN INDICATION
     Dosage: UNK
     Route: 065

REACTIONS (26)
  - Weight decreased [Recovered/Resolved]
  - Thinking abnormal [Unknown]
  - Headache [Recovered/Resolved]
  - Fatigue [Recovered/Resolved]
  - Off label use [Recovered/Resolved]
  - Hyperhidrosis [Recovering/Resolving]
  - Vision blurred [Recovered/Resolved]
  - Hallucination [Recovered/Resolved]
  - Nausea [Not Recovered/Not Resolved]
  - Depression [Recovered/Resolved]
  - Hypopnoea [Recovered/Resolved]
  - Prescribed overdose [Recovered/Resolved]
  - Injection site induration [Unknown]
  - Paraesthesia [Recovering/Resolving]
  - Pain in extremity [Recovering/Resolving]
  - Musculoskeletal stiffness [Recovering/Resolving]
  - Hyporeflexia [Recovering/Resolving]
  - Chromaturia [Recovered/Resolved]
  - Lethargy [Not Recovered/Not Resolved]
  - Apathy [Not Recovered/Not Resolved]
  - Cholelithiasis [Recovered/Resolved]
  - Dysuria [Recovered/Resolved]
  - Rash pruritic [Recovered/Resolved]
  - Decreased appetite [Unknown]
  - Dizziness [Recovering/Resolving]
  - Agitation [Recovering/Resolving]

NARRATIVE: CASE EVENT DATE: 2017
